FAERS Safety Report 25139816 (Version 1)
Quarter: 2025Q1

REPORT INFORMATION
  Report Type: Spontaneous
  Country: HR (occurrence: HR)
  Receive Date: 20250331
  Receipt Date: 20250331
  Transmission Date: 20250409
  Serious: Yes (Other)
  Sender: ALEXION PHARMACEUTICALS
  Company Number: 2025003927-000

PATIENT

DRUGS (4)
  1. QUETIAPINE FUMARATE [Suspect]
     Active Substance: QUETIAPINE FUMARATE
  2. CLONAZEPAM [Suspect]
     Active Substance: CLONAZEPAM
  3. LAMOTRIGINE [Suspect]
     Active Substance: LAMOTRIGINE
  4. BUPROPION [Suspect]
     Active Substance: BUPROPION

REACTIONS (2)
  - Loss of consciousness [Unknown]
  - Accidental exposure to product [Unknown]
